FAERS Safety Report 17036803 (Version 2)
Quarter: 2019Q4

REPORT INFORMATION
  Report Type: Report from Study
  Country: DE (occurrence: DE)
  Receive Date: 20191115
  Receipt Date: 20191129
  Transmission Date: 20200122
  Serious: Yes (Other)
  Sender: FDA-Public Use
  Company Number: PHHY2015DE150634

PATIENT
  Age: 30 Year
  Sex: Female

DRUGS (2)
  1. GILENYA [Suspect]
     Active Substance: FINGOLIMOD HYDROCHLORIDE
     Dosage: UNK, QD
     Route: 048
     Dates: start: 20150303, end: 20181015
  2. GILENYA [Suspect]
     Active Substance: FINGOLIMOD HYDROCHLORIDE
     Indication: MULTIPLE SCLEROSIS
     Dosage: UNK, QD
     Route: 048
     Dates: start: 20140526, end: 20150226

REACTIONS (5)
  - Escherichia urinary tract infection [Recovered/Resolved]
  - Urinary tract infection [Recovered/Resolved]
  - Lymphocyte count decreased [Recovered/Resolved]
  - Glaucoma [Recovered/Resolved]
  - Blood cholesterol increased [Unknown]

NARRATIVE: CASE EVENT DATE: 20141006
